FAERS Safety Report 4874703-9 (Version None)
Quarter: 2006Q1

REPORT INFORMATION
  Report Type: 
  Country: None (occurrence: None)
  Receive Date: 20060106
  Receipt Date: 20051219
  Transmission Date: 20060701
  Serious: Yes (Life-Threatening)
  Sender: FDA-Public Use
  Company Number: JP-MERCK-0512USA03961

PATIENT
  Age: 89 Year
  Sex: Female

DRUGS (2)
  1. PRIMAXIN [Suspect]
     Indication: PNEUMONIA
     Route: 042
     Dates: start: 20051126, end: 20051210
  2. VANCOMYCIN HYDROCHLORIDE [Suspect]
     Indication: INFECTION
     Route: 042
     Dates: start: 20051130, end: 20051210

REACTIONS (4)
  - LIP BLISTER [None]
  - LIP HAEMORRHAGE [None]
  - MELAENA [None]
  - THROMBOCYTOPENIA [None]
